FAERS Safety Report 16637971 (Version 1)
Quarter: 2019Q3

REPORT INFORMATION
  Report Type: Spontaneous
  Country: ES (occurrence: ES)
  Receive Date: 20190726
  Receipt Date: 20190726
  Transmission Date: 20191004
  Serious: Yes (Other)
  Sender: FDA-Public Use
  Company Number: ES-JNJFOC-20190729327

PATIENT
  Age: 64 Year
  Sex: Male

DRUGS (2)
  1. REMICADE [Suspect]
     Active Substance: INFLIXIMAB
     Indication: CROHN^S DISEASE
     Route: 042
     Dates: start: 20170112
  2. TACROLIMUS. [Concomitant]
     Active Substance: TACROLIMUS

REACTIONS (6)
  - Therapeutic product effect incomplete [Unknown]
  - Rectal haemorrhage [Recovered/Resolved]
  - Colitis [Recovered/Resolved]
  - Product use issue [Unknown]
  - Cytomegalovirus infection [Recovered/Resolved]
  - Off label use [Unknown]

NARRATIVE: CASE EVENT DATE: 20170126
